FAERS Safety Report 7820146-5 (Version None)
Quarter: 2011Q4

REPORT INFORMATION
  Report Type: 
  Country: None (occurrence: None)
  Receive Date: 20111013
  Receipt Date: 20110930
  Transmission Date: 20120403
  Serious: Yes (Hospitalization)
  Sender: FDA-Public Use
  Company Number: 2011-3898

PATIENT
  Sex: Female

DRUGS (5)
  1. FUROSEMIDE [Concomitant]
  2. ARIMIDEX [Concomitant]
  3. OMEPRAZOLE [Concomitant]
  4. MADOPAR (MADOPAR    /00349201/) [Concomitant]
  5. APO-GO AMPOULES (APO-GO) (APOMORPHINE HYDROCHLORIDE) (APOMORPHINE HYDR [Suspect]
     Indication: PARKINSON'S DISEASE
     Dosage: BOLUS 30MG/ 3ML (BOLUS 30 MG/3ML),   6.5 MG/HR OVER 24 HRS (6.5 MG, 1 IN 1 HR),

REACTIONS (4)
  - DEPENDENCE [None]
  - DOPAMINE DYSREGULATION SYNDROME [None]
  - DYSKINESIA [None]
  - OVERDOSE [None]
